FAERS Safety Report 12499712 (Version 2)
Quarter: 2016Q4

REPORT INFORMATION
  Report Type: Report from Study
  Country: JP (occurrence: JP)
  Receive Date: 20160627
  Receipt Date: 20161026
  Transmission Date: 20170207
  Serious: Yes (Hospitalization)
  Sender: FDA-Public Use
  Company Number: JP-SA-2016SA115966

PATIENT
  Age: 76 Year
  Sex: Female

DRUGS (1)
  1. PHOSBLOCK [Suspect]
     Active Substance: FERRIC HYDROXIDE
     Route: 048
     Dates: start: 20140707

REACTIONS (2)
  - Fracture [Recovering/Resolving]
  - Fracture [Recovering/Resolving]

NARRATIVE: CASE EVENT DATE: 20151204
